FAERS Safety Report 4534845-4 (Version None)
Quarter: 2004Q4

REPORT INFORMATION
  Report Type: 
  Country: None (occurrence: None)
  Receive Date: 20041222
  Receipt Date: 20040428
  Transmission Date: 20050328
  Serious: No
  Sender: FDA-Public Use
  Company Number: US-BRISTOL-MYERS SQUIBB COMPANY-12574059

PATIENT
  Age: 74 Year
  Sex: Female
  Weight: 73 kg

DRUGS (5)
  1. PRAVACHOL [Suspect]
     Indication: BLOOD CHOLESTEROL INCREASED
     Route: 048
     Dates: start: 19940101, end: 19970101
  2. PRAVACHOL [Suspect]
     Route: 048
     Dates: start: 19940101, end: 19940101
  3. VERAPAMIL [Concomitant]
  4. ECOTRIN [Concomitant]
  5. DIURETIC [Concomitant]

REACTIONS (1)
  - DRUG INEFFECTIVE [None]
